FAERS Safety Report 16068193 (Version 1)
Quarter: 2019Q1

REPORT INFORMATION
  Report Type: Spontaneous
  Country: NO (occurrence: NO)
  Receive Date: 20190313
  Receipt Date: 20190313
  Transmission Date: 20190418
  Serious: Yes (Hospitalization, Other)
  Sender: FDA-Public Use
  Company Number: NO-PFIZER INC-2019106944

PATIENT
  Age: 29 Year
  Sex: Female
  Weight: 72 kg

DRUGS (6)
  1. PREDNISOLON SA [Concomitant]
  2. CELEBREX [Concomitant]
     Active Substance: CELECOXIB
  3. FOLIC ACID. [Concomitant]
     Active Substance: FOLIC ACID
  4. SALAZOPYRIN EN [Suspect]
     Active Substance: SULFASALAZINE
     Indication: PSORIATIC ARTHROPATHY
     Dosage: UNDER AN INCREASE IN DOSAGE
     Route: 048
     Dates: start: 20190201, end: 20190214
  5. VITAMIN D [Concomitant]
     Active Substance: CHOLECALCIFEROL
  6. SOMAC [Concomitant]
     Active Substance: PANTOPRAZOLE SODIUM

REACTIONS (8)
  - Drug hypersensitivity [Recovering/Resolving]
  - Pyrexia [Unknown]
  - Face oedema [Unknown]
  - Abdominal pain [Unknown]
  - Dyspnoea [Unknown]
  - Rash [Recovering/Resolving]
  - Malaise [Unknown]
  - Product use in unapproved indication [Unknown]

NARRATIVE: CASE EVENT DATE: 20190201
